FAERS Safety Report 5164305-1 (Version None)
Quarter: 2006Q4

REPORT INFORMATION
  Report Type: 
  Country: None (occurrence: None)
  Receive Date: 20061129
  Receipt Date: 20061129
  Transmission Date: 20070319
  Serious: Yes (Other)
  Sender: FDA-Public Use
  Company Number: None

PATIENT
  Age: 78 Year
  Sex: Male
  Weight: 61.2356 kg

DRUGS (1)
  1. LEVAQUIN [Suspect]
     Indication: CYSTITIS BACTERIAL
     Dosage: ONE Q.D. PO
     Route: 048
     Dates: start: 20050922, end: 20050923

REACTIONS (1)
  - TENDONITIS [None]
